FAERS Safety Report 8300098-4 (Version None)
Quarter: 2012Q2

REPORT INFORMATION
  Report Type: 
  Country: None (occurrence: None)
  Receive Date: 20120420
  Receipt Date: 20120416
  Transmission Date: 20120825
  Serious: Yes (Other)
  Sender: FDA-Public Use
  Company Number: US-PFIZER INC-2012094304

PATIENT
  Sex: Female
  Weight: 81.179 kg

DRUGS (28)
  1. LYRICA [Suspect]
     Indication: NERVE INJURY
     Dosage: 150 MG, 2X/DAY
     Route: 048
  2. LASIX [Concomitant]
     Indication: RENAL FAILURE
     Dosage: UNK
  3. PLAQUENIL [Concomitant]
     Indication: SYSTEMIC LUPUS ERYTHEMATOSUS
     Dosage: UNK
  4. IPRATROPIUM [Concomitant]
     Indication: CHRONIC OBSTRUCTIVE PULMONARY DISEASE
     Dosage: UNK
  5. ALBUTEROL [Concomitant]
     Indication: EMPHYSEMA
  6. CALCIUM ACETATE [Concomitant]
     Dosage: UNK
  7. VITAMIN D [Concomitant]
     Dosage: 50000 UNITS, MONTHLY
  8. CYTOXAN [Concomitant]
     Indication: RENAL FAILURE
     Dosage: UNK
  9. HYDROCODONE [Concomitant]
     Indication: PAIN
  10. ALBUTEROL [Concomitant]
     Indication: CHRONIC OBSTRUCTIVE PULMONARY DISEASE
     Dosage: UNK
  11. ATENOLOL [Concomitant]
     Indication: HYPERTENSION
     Dosage: 5 UNK, UNK
  12. LYRICA [Suspect]
     Dosage: UNK
     Route: 048
  13. PROTONIX [Concomitant]
     Indication: GASTROOESOPHAGEAL REFLUX DISEASE
     Dosage: UNK
  14. FOLIC ACID [Concomitant]
     Dosage: UNK, 1X/DAY
  15. CHLORDIAZEPOXIDE HCL W/ CLIDINIUM BROMIDE [Concomitant]
     Indication: OESOPHAGEAL STENOSIS
     Dosage: 5/2.5 MG, UNK
  16. POTASSIUM CHLORIDE [Concomitant]
     Dosage: 20 MEQ, 1X/DAY
  17. VITAMIN B-12 [Concomitant]
     Dosage: UNK
  18. COMBIVENT [Concomitant]
     Indication: CHRONIC OBSTRUCTIVE PULMONARY DISEASE
     Dosage: UNK
  19. LYRICA [Suspect]
     Indication: FIBROMYALGIA
     Dosage: 75 MG, 4X/DAY
     Route: 048
     Dates: start: 20100601
  20. HYDROCODONE [Concomitant]
     Indication: OSTEOARTHRITIS
     Dosage: UNK
  21. IPRATROPIUM [Concomitant]
     Indication: ASTHMA
  22. COMBIVENT [Concomitant]
     Indication: EMPHYSEMA
  23. ALBUTEROL [Concomitant]
     Indication: ASTHMA
  24. RAMIPRIL [Concomitant]
     Indication: HYPERTENSION
     Dosage: UNK MG, UNK
  25. VITAMIN B COMPLEX CAP [Concomitant]
     Dosage: UNK
  26. AMARYL [Concomitant]
     Indication: TYPE 2 DIABETES MELLITUS
     Dosage: UNK
  27. IPRATROPIUM [Concomitant]
     Indication: EMPHYSEMA
  28. COMBIVENT [Concomitant]
     Indication: ASTHMA

REACTIONS (4)
  - EUPHORIC MOOD [None]
  - BODY HEIGHT DECREASED [None]
  - WEIGHT INCREASED [None]
  - WEIGHT FLUCTUATION [None]
